FAERS Safety Report 9133646 (Version 1)
Quarter: 2013Q1

REPORT INFORMATION
  Report Type: Spontaneous
  Country: FR (occurrence: FR)
  Receive Date: 20130128
  Receipt Date: 20130128
  Transmission Date: 20140127
  Serious: Yes (Hospitalization, Other)
  Sender: FDA-Public Use
  Company Number: FR-009507513-1301FRA009946

PATIENT
  Age: 40 Year
  Sex: Male

DRUGS (10)
  1. TIENAM 500MG/500MG, POUDRE POUR PERFUSION [Suspect]
     Indication: PNEUMONIA
     Dosage: 500 MG, QID
     Route: 042
     Dates: start: 20121102, end: 20121126
  2. CIFLOX (CIPROFLOXACIN HYDROCHLORIDE) [Suspect]
     Indication: PNEUMONIA
     Dosage: 400 MG, TID
     Route: 042
     Dates: start: 20121107, end: 20121126
  3. AMIKACIN [Concomitant]
     Dosage: 1500 MG, QD
     Dates: start: 20121102, end: 20121105
  4. TERCIAN [Concomitant]
     Dosage: 25 MG, TID
     Route: 048
  5. DEROXAT [Concomitant]
     Dosage: 20 MG, QD
     Route: 048
  6. HALDOL [Concomitant]
     Dosage: 15 MG, QD
     Route: 048
  7. SUBUTEX [Concomitant]
     Dosage: 8 MG, BID
     Route: 048
  8. INEXIUM [Concomitant]
     Dosage: 40 MG, QD
     Route: 048
  9. PREVISCAN [Concomitant]
     Dosage: 20 MG, QD
     Route: 048
  10. TEMESTA [Concomitant]
     Dosage: 2.5 MG, TID
     Route: 048

REACTIONS (2)
  - Complex partial seizures [Recovered/Resolved]
  - Grand mal convulsion [Recovered/Resolved]
